FAERS Safety Report 11847365 (Version 1)
Quarter: 2015Q4

REPORT INFORMATION
  Report Type: Spontaneous
  Country: US (occurrence: US)
  Receive Date: 20151217
  Receipt Date: 20151217
  Transmission Date: 20160305
  Serious: Yes (Hospitalization)
  Sender: FDA-Public Use
  Company Number: US-ROCHE-269449

PATIENT
  Age: 19 Year
  Sex: Male
  Weight: 72.6 kg

DRUGS (1)
  1. TAMIFLU [Suspect]
     Active Substance: OSELTAMIVIR PHOSPHATE
     Indication: INFLUENZA
     Route: 048
     Dates: start: 20010428, end: 20010504

REACTIONS (7)
  - Lip swelling [Recovering/Resolving]
  - Lacrimation increased [None]
  - Conjunctivitis [Recovering/Resolving]
  - Malaise [Recovering/Resolving]
  - Cough [Recovering/Resolving]
  - Scleral disorder [None]
  - Dysphagia [None]

NARRATIVE: CASE EVENT DATE: 20010502
